FAERS Safety Report 6163627-5 (Version None)
Quarter: 2009Q2

REPORT INFORMATION
  Report Type: 
  Country: None (occurrence: None)
  Receive Date: 20090422
  Receipt Date: 20090409
  Transmission Date: 20091009
  Serious: Yes (Hospitalization)
  Sender: FDA-Public Use
  Company Number: US-PFIZER INC-2008080816

PATIENT
  Sex: Male
  Weight: 88 kg

DRUGS (14)
  1. SUNITINIB MALATE [Suspect]
     Indication: RENAL CELL CARCINOMA
     Dosage: 50 MG, QOD
     Route: 048
     Dates: start: 20080825
  2. ERLOTINIB [Suspect]
     Indication: RENAL CELL CARCINOMA
     Dosage: 150 MG, QOD
     Route: 048
     Dates: start: 20080825
  3. TESSALON [Concomitant]
     Dosage: 100 MG, UNK
     Route: 048
  4. CLINDAMYCIN [Concomitant]
     Dosage: 1%
     Route: 061
  5. LOMOTIL [Concomitant]
     Dosage: 2.5- 0.025 MG
     Route: 048
  6. GUAIFENESIN [Concomitant]
     Dosage: 100 MG/ 5 ML
     Route: 048
  7. HYCODAN [Concomitant]
     Dosage: 5-1.5 MG/ 5 ML
     Route: 048
  8. IMODIUM A-D [Concomitant]
     Dosage: 2 MG, UNK
     Route: 048
  9. LOPERAMIDE [Concomitant]
     Dosage: 2 MG, UNK
     Route: 048
  10. CLARITIN [Concomitant]
     Dosage: 10 MG, UNK
     Route: 048
  11. OXYCODONE HCL [Concomitant]
     Dosage: 10 MG, CR - SUSTAINED RELEASE 12HR
     Route: 048
  12. OXYCODONE HCL [Concomitant]
     Dosage: IMMEDIATE RELEASE
     Route: 048
  13. SORBITOL [Concomitant]
     Dosage: 70% MISC.
  14. LEVITRA [Concomitant]
     Dosage: 20 MG, UNK
     Route: 048

REACTIONS (18)
  - ALANINE AMINOTRANSFERASE ABNORMAL [None]
  - ANOREXIA [None]
  - ASPARTATE AMINOTRANSFERASE ABNORMAL [None]
  - BLOOD ALBUMIN ABNORMAL [None]
  - BLOOD MAGNESIUM ABNORMAL [None]
  - BLOOD PHOSPHORUS ABNORMAL [None]
  - COUGH [None]
  - DYSGEUSIA [None]
  - FATIGUE [None]
  - HAEMOPTYSIS [None]
  - HEADACHE [None]
  - HYPERGLYCAEMIA [None]
  - MOOD ALTERED [None]
  - MUSCULOSKELETAL STIFFNESS [None]
  - PAIN [None]
  - RASH [None]
  - RASH PRURITIC [None]
  - VISION BLURRED [None]
